FAERS Safety Report 5341687-9 (Version None)
Quarter: 2007Q2

REPORT INFORMATION
  Report Type: 
  Country: None (occurrence: None)
  Receive Date: 20070530
  Receipt Date: 20070521
  Transmission Date: 20071010
  Serious: Yes (Hospitalization)
  Sender: FDA-Public Use
  Company Number: 2007AL002075

PATIENT
  Age: 9 Year
  Sex: Female

DRUGS (3)
  1. IBUPROFEN [Suspect]
     Dosage: UNKNOWN; UNK; PO
     Route: 048
  2. PARACETAMOL [Concomitant]
  3. CEFTRIAXONE [Concomitant]

REACTIONS (6)
  - HYDRONEPHROSIS [None]
  - HYDROURETER [None]
  - MENINGOCOCCAL SEPSIS [None]
  - RENAL FAILURE [None]
  - RENAL PAPILLARY NECROSIS [None]
  - URETERIC OBSTRUCTION [None]
